FAERS Safety Report 6507373-4 (Version None)
Quarter: 2009Q4

REPORT INFORMATION
  Report Type: 
  Country: None (occurrence: None)
  Receive Date: 20091221
  Receipt Date: 20091214
  Transmission Date: 20100525
  Serious: Yes (Death, Hospitalization)
  Sender: FDA-Public Use
  Company Number: JP-ROCHE-642631

PATIENT
  Sex: Male
  Weight: 64 kg

DRUGS (10)
  1. AVASTIN [Suspect]
     Indication: COLON CANCER METASTATIC
     Route: 041
     Dates: start: 20090219, end: 20090416
  2. AVASTIN [Suspect]
     Route: 041
     Dates: start: 20090430, end: 20090528
  3. ELPLAT [Concomitant]
     Route: 041
     Dates: start: 20090219, end: 20090416
  4. ELPLAT [Concomitant]
     Route: 041
     Dates: start: 20090430, end: 20090528
  5. FLUOROURACIL [Concomitant]
     Route: 040
     Dates: start: 20090219, end: 20090416
  6. FLUOROURACIL [Concomitant]
     Route: 040
     Dates: start: 20090219, end: 20090401
  7. FLUOROURACIL [Concomitant]
     Route: 040
     Dates: start: 20090430, end: 20090528
  8. FLUOROURACIL [Concomitant]
     Route: 040
     Dates: start: 20090430, end: 20090501
  9. LEVOFOLINATE [Concomitant]
     Route: 041
     Dates: start: 20090219, end: 20090416
  10. LEVOFOLINATE [Concomitant]
     Route: 041
     Dates: start: 20090430, end: 20090528

REACTIONS (2)
  - DISEASE PROGRESSION [None]
  - RECTAL PERFORATION [None]
